FAERS Safety Report 12578873 (Version 1)
Quarter: 2016Q3

REPORT INFORMATION
  Report Type: Spontaneous
  Country: US (occurrence: US)
  Receive Date: 20160721
  Receipt Date: 20160721
  Transmission Date: 20161109
  Serious: No
  Sender: FDA-Public Use
  Company Number: US-PFIZER INC-2016352725

PATIENT

DRUGS (2)
  1. XANAX [Suspect]
     Active Substance: ALPRAZOLAM
     Indication: ANXIETY
     Dosage: 1 MG, DAILY
     Route: 064
     Dates: start: 201205, end: 201210
  2. XANAX [Suspect]
     Active Substance: ALPRAZOLAM
     Dosage: 2 MG, DAILY
     Route: 063
     Dates: start: 201210, end: 201301

REACTIONS (3)
  - Maternal exposure during pregnancy [Unknown]
  - Developmental delay [Unknown]
  - Exposure during breast feeding [Unknown]
